FAERS Safety Report 17651346 (Version 2)
Quarter: 2020Q2

REPORT INFORMATION
  Report Type: Spontaneous
  Country: US (occurrence: US)
  Receive Date: 20200409
  Receipt Date: 20200421
  Transmission Date: 20200713
  Serious: Yes (Disabling)
  Sender: FDA-Public Use
  Company Number: US-LEITERS-2082569

PATIENT
  Age: 67 Year
  Sex: Male
  Weight: 89.55 kg

DRUGS (1)
  1. LIDOCAINE HCL 1% - PHENYLEPHRINE HCL 1.5% [Suspect]
     Active Substance: LIDOCAINE HYDROCHLORIDE\PHENYLEPHRINE HYDROCHLORIDE
     Indication: CATARACT
     Route: 031
     Dates: start: 20191216, end: 20191216

REACTIONS (1)
  - Endophthalmitis [Recovered/Resolved with Sequelae]

NARRATIVE: CASE EVENT DATE: 20191221
